FAERS Safety Report 13983036 (Version 2)
Quarter: 2017Q3

REPORT INFORMATION
  Report Type: Spontaneous
  Country: SG (occurrence: SG)
  Receive Date: 20170918
  Receipt Date: 20170926
  Transmission Date: 20171128
  Serious: Yes (Hospitalization, Other)
  Sender: FDA-Public Use
  Company Number: SG-JNJFOC-20170914616

PATIENT
  Age: 45 Year
  Sex: Female

DRUGS (1)
  1. XARELTO [Suspect]
     Active Substance: RIVAROXABAN
     Indication: PRODUCT USED FOR UNKNOWN INDICATION
     Dosage: OM
     Route: 048

REACTIONS (3)
  - Cerebral haemorrhage [Recovered/Resolved with Sequelae]
  - Cerebrovascular accident [Recovered/Resolved with Sequelae]
  - Blood creatinine abnormal [Unknown]

NARRATIVE: CASE EVENT DATE: 20170906
